FAERS Safety Report 11443118 (Version 1)
Quarter: 2015Q3

REPORT INFORMATION
  Report Type: Spontaneous
  Country: US (occurrence: US)
  Receive Date: 20150901
  Receipt Date: 20150901
  Transmission Date: 20151125
  Serious: Yes (Other)
  Sender: FDA-Public Use
  Company Number: US-ABBVIE-15P-163-1452595-00

PATIENT
  Age: 77 Year
  Sex: Female

DRUGS (3)
  1. FOSAMAX [Concomitant]
     Active Substance: ALENDRONATE SODIUM
     Indication: BONE DENSITY DECREASED
  2. SYNTHROID [Suspect]
     Active Substance: LEVOTHYROXINE SODIUM
     Indication: AUTOIMMUNE THYROIDITIS
     Dosage: .1MG ALTERNATING WITH .112MG DAILY
     Route: 048
     Dates: start: 1991
  3. ACTONEL [Concomitant]
     Active Substance: RISEDRONATE SODIUM
     Indication: BONE DENSITY DECREASED

REACTIONS (3)
  - Osteoporosis [Not Recovered/Not Resolved]
  - Breast cancer [Unknown]
  - Irritable bowel syndrome [Not Recovered/Not Resolved]
